FAERS Safety Report 20112336 (Version 1)
Quarter: 2021Q4

REPORT INFORMATION
  Report Type: Spontaneous
  Country: RU (occurrence: None)
  Receive Date: 20211125
  Receipt Date: 20211125
  Transmission Date: 20220303
  Serious: Yes (Other)
  Sender: FDA-Public Use
  Company Number: RU-ROCHE-2959789

PATIENT
  Age: 65 Year
  Sex: Female

DRUGS (1)
  1. ACTEMRA [Suspect]
     Active Substance: TOCILIZUMAB
     Indication: Rheumatoid arthritis
     Route: 058

REACTIONS (5)
  - Leukopenia [Unknown]
  - Transaminases increased [Unknown]
  - Oral infection [Unknown]
  - Rheumatoid arthritis [Unknown]
  - Tonsillitis [Unknown]

NARRATIVE: CASE EVENT DATE: 20160401
